FAERS Safety Report 8583273-3 (Version None)
Quarter: 2012Q3

REPORT INFORMATION
  Report Type: 
  Country: None (occurrence: None)
  Receive Date: 20120809
  Receipt Date: 20120801
  Transmission Date: 20120928
  Serious: Yes (Hospitalization, Other)
  Sender: FDA-Public Use
  Company Number: FR-ABBOTT-12P-056-0963089-00

PATIENT
  Sex: Male
  Weight: 66 kg

DRUGS (11)
  1. PREDNISONE TAB [Concomitant]
     Indication: JUVENILE ARTHRITIS
  2. TETRAZEPAM [Concomitant]
     Indication: PRODUCT USED FOR UNKNOWN INDICATION
  3. CLARITHROMYCIN [Suspect]
     Indication: MYCOBACTERIAL INFECTION
     Route: 048
     Dates: start: 20120531, end: 20120626
  4. KETOPROFEN [Concomitant]
     Indication: JUVENILE ARTHRITIS
     Dosage: 100/300 MG/DAY
  5. ASPIRIN [Concomitant]
     Indication: PRODUCT USED FOR UNKNOWN INDICATION
  6. PANTOPRAZOLE [Concomitant]
     Indication: PRODUCT USED FOR UNKNOWN INDICATION
  7. METFORMIN HCL [Concomitant]
     Indication: TYPE 2 DIABETES MELLITUS
     Route: 048
  8. SERTRALINE HYDROCHLORIDE [Concomitant]
     Indication: PRODUCT USED FOR UNKNOWN INDICATION
  9. ZYVOX [Interacting]
     Indication: MYCOBACTERIAL INFECTION
     Route: 048
     Dates: start: 20120531, end: 20120626
  10. IMETH (METHOTRATE) [Concomitant]
     Indication: JUVENILE ARTHRITIS
  11. BISOPROLOL FUMARATE [Concomitant]
     Indication: PRODUCT USED FOR UNKNOWN INDICATION

REACTIONS (14)
  - PANCYTOPENIA [None]
  - TOXICITY TO VARIOUS AGENTS [None]
  - THROMBOCYTOPENIA [None]
  - BLOOD POTASSIUM INCREASED [None]
  - RECTAL HAEMORRHAGE [None]
  - BONE MARROW DISORDER [None]
  - NEUTROPENIA [None]
  - BLOOD CREATININE INCREASED [None]
  - BLOOD COUNT ABNORMAL [None]
  - DIARRHOEA [None]
  - WEIGHT DECREASED [None]
  - MEGAKARYOCYTES ABNORMAL [None]
  - DRUG INTERACTION [None]
  - VOMITING [None]
